FAERS Safety Report 9239467 (Version 1)
Quarter: 2013Q2

REPORT INFORMATION
  Report Type: Spontaneous
  Country: US (occurrence: US)
  Receive Date: 20130418
  Receipt Date: 20130418
  Transmission Date: 20140414
  Serious: Yes (Death, Hospitalization)
  Sender: FDA-Public Use
  Company Number: US-SANOFI-AVENTIS-2012SA037283

PATIENT
  Age: 73 Year
  Sex: Male
  Weight: 75 kg

DRUGS (13)
  1. LEVOTHYROXINE [Concomitant]
     Indication: HYPOTHYROIDISM
     Route: 048
     Dates: start: 2001
  2. ALLOPURINOL [Concomitant]
     Indication: GOUT
     Route: 048
     Dates: start: 2007
  3. LOVENOX [Suspect]
     Indication: DEEP VEIN THROMBOSIS
     Route: 058
     Dates: start: 201112
  4. SAR245409 [Concomitant]
     Indication: NEOPLASM
     Route: 048
     Dates: start: 20120228, end: 20120312
  5. MSC1936369B [Concomitant]
     Indication: NEOPLASM
     Route: 048
     Dates: start: 20120228, end: 20120312
  6. SCOPOLAMINE [Concomitant]
     Indication: NAUSEA
     Route: 062
     Dates: start: 20120223
  7. ATIVAN [Concomitant]
     Indication: SLEEP DISORDER
     Route: 048
     Dates: start: 20111229, end: 20120313
  8. ATIVAN [Concomitant]
     Indication: NAUSEA
     Route: 048
     Dates: start: 20111229, end: 20120313
  9. ZOFRAN [Concomitant]
     Indication: NAUSEA
     Route: 048
     Dates: start: 201112
  10. DURAGESIC [Concomitant]
     Indication: MUSCULOSKELETAL PAIN
     Route: 062
     Dates: start: 20120223
  11. DURAGESIC [Concomitant]
     Indication: ABDOMINAL PAIN UPPER
     Route: 062
     Dates: start: 20120223
  12. LORTAB [Concomitant]
     Indication: MUSCULOSKELETAL PAIN
     Route: 048
     Dates: start: 2010
  13. LORTAB [Concomitant]
     Indication: ABDOMINAL PAIN UPPER
     Route: 048
     Dates: start: 2010

REACTIONS (1)
  - Subdural haematoma [Fatal]
